FAERS Safety Report 6683811-1 (Version None)
Quarter: 2010Q2

REPORT INFORMATION
  Report Type: 
  Country: None (occurrence: None)
  Receive Date: 20100416
  Receipt Date: 20100412
  Transmission Date: 20101027
  Serious: Yes (Hospitalization)
  Sender: FDA-Public Use
  Company Number: US-ASTRAZENECA-2007UW17014

PATIENT
  Age: 17966 Day
  Sex: Male
  Weight: 87.1 kg

DRUGS (85)
  1. SEROQUEL [Suspect]
     Indication: SLEEP DISORDER
     Route: 048
     Dates: start: 20001025, end: 20010328
  2. SEROQUEL [Suspect]
     Indication: DEPRESSION
     Route: 048
     Dates: start: 20001025, end: 20010328
  3. SEROQUEL [Suspect]
     Route: 048
     Dates: start: 20010328, end: 20021215
  4. SEROQUEL [Suspect]
     Route: 048
     Dates: start: 20010328, end: 20021215
  5. SEROQUEL [Suspect]
     Route: 048
     Dates: start: 20021215, end: 20050120
  6. SEROQUEL [Suspect]
     Route: 048
     Dates: start: 20021215, end: 20050120
  7. SEROQUEL [Suspect]
     Route: 048
     Dates: start: 20050120, end: 20050310
  8. SEROQUEL [Suspect]
     Route: 048
     Dates: start: 20050120, end: 20050310
  9. SEROQUEL [Suspect]
     Dosage: 100 MG-600 MG
     Route: 048
  10. SEROQUEL [Suspect]
     Dosage: 100 MG-600 MG
     Route: 048
  11. GEODON [Concomitant]
     Dates: start: 20010328
  12. ZIAC [Concomitant]
     Dates: start: 20010315
  13. ALTACE [Concomitant]
     Dates: start: 20010315
  14. LOXITANE [Concomitant]
     Dates: start: 20010925
  15. REMERON [Concomitant]
     Dates: start: 19990204, end: 20011114
  16. REMERON [Concomitant]
  17. TOPAMAX [Concomitant]
  18. TOPAMAX [Concomitant]
     Dates: start: 20020109, end: 20020830
  19. ABILIFY [Concomitant]
     Dosage: 15-30 MG
     Dates: start: 20021211
  20. WELLBUTRIN SR [Concomitant]
     Dates: start: 20010328, end: 20021215
  21. WELLBUTRIN SR [Concomitant]
     Dates: start: 20021215
  22. XANAX [Concomitant]
     Dates: start: 19971119
  23. KLONOPIN [Concomitant]
     Indication: ANXIETY
     Dates: start: 20021211
  24. DESYREL [Concomitant]
     Dates: start: 20030428, end: 20050310
  25. AVAPRO [Concomitant]
     Indication: SLEEP DISORDER
     Dates: start: 20030718
  26. AVAPRO [Concomitant]
     Indication: DEPRESSION
     Dates: start: 20030718
  27. NOVOLOG [Concomitant]
     Indication: DIABETES MELLITUS
     Dates: start: 20030718
  28. TRILEPTAL [Concomitant]
     Dates: start: 20050120
  29. BENADRYL [Concomitant]
  30. HALDOL [Concomitant]
     Dates: end: 19971119
  31. RISPERDAL [Concomitant]
     Dates: start: 19971224, end: 19980312
  32. RISPERDAL [Concomitant]
     Dates: start: 19980414, end: 19980915
  33. RISPERDAL [Concomitant]
     Dates: start: 19980915, end: 19990629
  34. STELAZINE [Concomitant]
     Dates: start: 19971119, end: 19971128
  35. THORAZINE [Concomitant]
     Dates: start: 19971201, end: 19971224
  36. THORAZINE [Concomitant]
     Dates: start: 20000224, end: 20001025
  37. TRILAFON [Concomitant]
     Dates: start: 19971119
  38. ZYPREXA [Concomitant]
     Dates: start: 19980915, end: 19981006
  39. ZYPREXA [Concomitant]
     Dates: end: 20060331
  40. TRICOR [Concomitant]
     Indication: HYPERLIPIDAEMIA
  41. LANTUS [Concomitant]
     Indication: DIABETES MELLITUS
     Dosage: 38 UNITS
  42. PRILOSEC OTC [Concomitant]
     Indication: PROPHYLAXIS AGAINST GASTROINTESTINAL ULCER
  43. BISOPROLOL [Concomitant]
  44. ACIPHEX [Concomitant]
  45. ALPRAZOLAM [Concomitant]
  46. ERYTHROMYCIN [Concomitant]
  47. FAMOTIDINE [Concomitant]
  48. FENOFIBRATE [Concomitant]
  49. FENTANYL CITRATE [Concomitant]
  50. HYDROMORPHONE HYDROCHLORIDE [Concomitant]
  51. IRBESARTAN [Concomitant]
  52. PENICILLIN [Concomitant]
  53. MIRTAZAPINE [Concomitant]
  54. OXCARBAZEPINE [Concomitant]
  55. DEMEROL [Concomitant]
  56. VICODIN [Concomitant]
  57. PHENERGAN [Concomitant]
  58. HEPARIN SODIUM [Concomitant]
  59. ROCEPHIN [Concomitant]
  60. ARIPIPRAZOLE [Concomitant]
  61. DIOVAN [Concomitant]
  62. CLONAZEPAM [Concomitant]
  63. FERROUS SULFATE TAB [Concomitant]
  64. LANSOPRAZOLE [Concomitant]
  65. LOSARTAN POTASSIUM [Concomitant]
  66. PROCHLORPERAZINE [Concomitant]
  67. PANCRELIPASE [Concomitant]
  68. DIPHENHYDRAMINE HYDROCHLORIDE [Concomitant]
  69. AMBIEN [Concomitant]
  70. CEPHALEXIN [Concomitant]
  71. LOXAPINE SUCCINATE [Concomitant]
  72. MORPHINE SULFATE [Concomitant]
  73. CEFAZOLIN SODIUM [Concomitant]
  74. KETOROLAC TROMETHAMINE [Concomitant]
  75. VANCOMYCIN HYDROCHLORIDE [Concomitant]
  76. LITHOBID [Concomitant]
  77. CARVEDILOL [Concomitant]
  78. ERTAPENEM SODIUM [Concomitant]
  79. GABAPENTIN [Concomitant]
  80. MEGESTROL ACETATE [Concomitant]
  81. OMEPRAZOLE [Concomitant]
  82. LAMICTAL [Concomitant]
  83. LIPITOR [Concomitant]
  84. LEVAGUIN [Concomitant]
  85. LUNESTA [Concomitant]

REACTIONS (9)
  - CALCULUS URETHRAL [None]
  - FLANK PAIN [None]
  - OBSTRUCTION GASTRIC [None]
  - PAIN [None]
  - PANCREATITIS [None]
  - PANCREATITIS ACUTE [None]
  - TYPE 2 DIABETES MELLITUS [None]
  - URETHRAL STENOSIS [None]
  - WEIGHT INCREASED [None]
